FAERS Safety Report 15392654 (Version 2)
Quarter: 2018Q4

REPORT INFORMATION
  Report Type: Report from Study
  Country: GB (occurrence: GB)
  Receive Date: 20180917
  Receipt Date: 20181010
  Transmission Date: 20190204
  Serious: Yes (Life-Threatening, Hospitalization, Other)
  Sender: FDA-Public Use
  Company Number: GB-TAKEDA-2018MPI011591

PATIENT
  Sex: Male

DRUGS (6)
  1. CYCLOPHOSPHAMIDE. [Suspect]
     Active Substance: CYCLOPHOSPHAMIDE
     Indication: PLASMA CELL MYELOMA
     Dosage: UNK
     Route: 065
  2. BORTEZOMIB. [Suspect]
     Active Substance: BORTEZOMIB
     Indication: PLASMA CELL MYELOMA
     Dosage: UNK
     Route: 065
     Dates: start: 201710
  3. THALIDOMIDE [Suspect]
     Active Substance: THALIDOMIDE
     Indication: PLASMA CELL MYELOMA
     Dosage: UNK
     Route: 065
     Dates: start: 201710
  4. DEXAMETHASONE. [Suspect]
     Active Substance: DEXAMETHASONE
     Dosage: UNK
     Route: 065
  5. BORTEZOMIB. [Suspect]
     Active Substance: BORTEZOMIB
     Dosage: UNK
     Route: 065
  6. DEXAMETHASONE. [Suspect]
     Active Substance: DEXAMETHASONE
     Indication: PLASMA CELL MYELOMA
     Dosage: UNK
     Route: 065
     Dates: start: 201710

REACTIONS (4)
  - Thrombosis [Unknown]
  - Sepsis [Unknown]
  - Gastrointestinal disorder [Unknown]
  - Postoperative wound complication [Recovered/Resolved]
